FAERS Safety Report 13210260 (Version 3)
Quarter: 2018Q1

REPORT INFORMATION
  Report Type: Spontaneous
  Country: US (occurrence: US)
  Receive Date: 20170209
  Receipt Date: 20180111
  Transmission Date: 20180508
  Serious: No
  Sender: FDA-Public Use
  Company Number: US-ACTELION-A-NJ2017-149656

PATIENT
  Age: 89 Year
  Sex: Female

DRUGS (6)
  1. UPTRAVI [Suspect]
     Active Substance: SELEXIPAG
     Dosage: 800 MCG, BID
     Route: 048
     Dates: start: 20170204
  2. WARFARIN [Concomitant]
     Active Substance: WARFARIN
  3. UPTRAVI [Suspect]
     Active Substance: SELEXIPAG
     Indication: PULMONARY ARTERIAL HYPERTENSION
     Dosage: UNK UNK, BID
     Route: 048
     Dates: start: 20170112, end: 20170310
  4. UPTRAVI [Suspect]
     Active Substance: SELEXIPAG
     Dosage: 600 MCG, BID
     Route: 048
     Dates: start: 20170208
  5. TYVASO [Suspect]
     Active Substance: TREPROSTINIL
     Indication: PULMONARY ARTERIAL HYPERTENSION
     Dosage: 18-54 MCG,  (3 TO 9 BREATHS) QID
     Route: 055
     Dates: start: 20120717, end: 201701
  6. DILTIAZEM. [Concomitant]
     Active Substance: DILTIAZEM

REACTIONS (9)
  - Dizziness [Unknown]
  - Peripheral swelling [Unknown]
  - Fatigue [Unknown]
  - Asthenia [Unknown]
  - Pain in extremity [Unknown]
  - Dry mouth [Unknown]
  - Arthralgia [Unknown]
  - Pain in jaw [Unknown]
  - Myalgia [Unknown]

NARRATIVE: CASE EVENT DATE: 201701
